FAERS Safety Report 7943205-5 (Version None)
Quarter: 2011Q4

REPORT INFORMATION
  Report Type: 
  Country: None (occurrence: None)
  Receive Date: 20111128
  Receipt Date: 20110923
  Transmission Date: 20120403
  Serious: Yes (Other)
  Sender: FDA-Public Use
  Company Number: PHHY2011BR91860

PATIENT
  Sex: Female
  Weight: 72 kg

DRUGS (12)
  1. METFORMIN HYDROCHLORIDE [Concomitant]
     Dosage: 1 DF, QD
  2. VASLIP [Suspect]
     Indication: BLOOD CHOLESTEROL INCREASED
     Dosage: 1 DF, QD
     Route: 048
     Dates: start: 20110201
  3. VITAMIN D [Concomitant]
     Indication: VITAMIN D DEFICIENCY
     Dosage: 20 DRP, QD
     Route: 048
  4. PIASCLEDINE [Concomitant]
     Indication: OSTEOARTHRITIS
     Dosage: 1 DF, QD
     Route: 048
  5. LESCOL XL [Suspect]
     Indication: BLOOD CHOLESTEROL INCREASED
     Dosage: 1 DF, QD
     Dates: end: 20110201
  6. AMITRIL [Concomitant]
     Indication: NEUROPATHY PERIPHERAL
     Dosage: 1 DF, QD
     Route: 048
  7. BENICAR [Concomitant]
     Indication: HYPERTENSION
     Dosage: 1 DF, QD
     Route: 048
  8. TIOTIPLID [Concomitant]
     Indication: NEUROPATHY PERIPHERAL
     Dosage: 1 DF, QD
  9. LESCOL XL [Suspect]
     Dosage: 80 MG, QD
     Dates: start: 20110923
  10. ROSUCIR [Suspect]
     Indication: BLOOD CHOLESTEROL INCREASED
     Dosage: 1 DF, QD
     Route: 048
  11. DICETEL [Concomitant]
     Indication: IRRITABLE BOWEL SYNDROME
     Dosage: 1 DF, QD
     Route: 048
  12. HYGROTON [Concomitant]
     Indication: HYPERTENSION
     Dosage: 1 DF, QD
     Route: 048

REACTIONS (6)
  - NEUROPATHY PERIPHERAL [None]
  - BLOOD CHOLESTEROL INCREASED [None]
  - LACTOSE INTOLERANCE [None]
  - IRRITABLE BOWEL SYNDROME [None]
  - DIARRHOEA [None]
  - ARTHRITIS [None]
